FAERS Safety Report 5626494-1 (Version None)
Quarter: 2008Q1

REPORT INFORMATION
  Report Type: 
  Country: None (occurrence: None)
  Receive Date: 20080214
  Receipt Date: 20080205
  Transmission Date: 20080703
  Serious: Yes (Disabling, Other)
  Sender: FDA-Public Use
  Company Number: US-PURDUE-USA_2008_0031302

PATIENT
  Age: 27 Year
  Sex: Female

DRUGS (5)
  1. DILAUDID - HP INJECTION [Suspect]
     Indication: PAIN
     Dosage: 10 MG, Q3H
     Route: 030
     Dates: start: 20010101
  2. FLAGYL [Concomitant]
     Indication: SEXUALLY TRANSMITTED DISEASE
  3. ANTIBIOTICS [Concomitant]
     Indication: URINARY TRACT INFECTION
  4. FOLIC ACID [Concomitant]
     Indication: SICKLE CELL ANAEMIA
  5. DOXYCYCLINE [Concomitant]

REACTIONS (3)
  - BLOOD CREATINE PHOSPHOKINASE INCREASED [None]
  - MUSCLE SWELLING [None]
  - MYOPATHY [None]
